FAERS Safety Report 4983805-8 (Version None)
Quarter: 2006Q1

REPORT INFORMATION
  Report Type: 
  Country: None (occurrence: None)
  Receive Date: 20060301
  Receipt Date: 20051121
  Transmission Date: 20060701
  Serious: No
  Sender: FDA-Public Use
  Company Number: S05-USA-05014-01

PATIENT
  Age: 71 Year
  Sex: Female

DRUGS (9)
  1. NAMENDA [Suspect]
     Indication: DEMENTIA ALZHEIMER'S TYPE
     Dosage: 5 MG BID PO
     Route: 048
     Dates: start: 20051117, end: 20051119
  2. NAMENDA [Suspect]
     Indication: DEMENTIA ALZHEIMER'S TYPE
     Dosage: 5 MG QD PO
     Route: 048
     Dates: start: 20051110, end: 20051116
  3. CRESTOR (ROSUVATATIN) [Concomitant]
  4. NIASPAN [Concomitant]
  5. METFORIN [Concomitant]
  6. ACTOS [Concomitant]
  7. LEVOXYL [Concomitant]
  8. COUMADIN [Concomitant]
  9. LOPERAMIDE [Concomitant]

REACTIONS (2)
  - FEELING HOT [None]
  - RASH GENERALISED [None]
